FAERS Safety Report 9463876 (Version 1)
Quarter: 2013Q3

REPORT INFORMATION
  Report Type: Report from Study
  Country: CA (occurrence: CA)
  Receive Date: 20130819
  Receipt Date: 20130819
  Transmission Date: 20140515
  Serious: Yes (Other)
  Sender: FDA-Public Use
  Company Number: CA-JNJFOC-20130805182

PATIENT
  Sex: Female

DRUGS (2)
  1. REMICADE [Suspect]
     Indication: RHEUMATOID ARTHRITIS
     Dosage: ONCE EVERY 8 (UNITS UNSPECIFIED)
     Route: 042
     Dates: start: 20050204
  2. BENADRYL [Concomitant]
     Indication: PREMEDICATION
     Route: 065

REACTIONS (1)
  - Bladder cancer [Unknown]
